FAERS Safety Report 8915416 (Version 2)
Quarter: 2012Q4

REPORT INFORMATION
  Report Type: 
  Country: JP (occurrence: JP)
  Receive Date: 20121119
  Receipt Date: 20121121
  Transmission Date: 20130627
  Serious: Yes (Hospitalization, Other)
  Sender: FDA-Public Use
  Company Number: JP-ASTRAZENECA-2012SE85497

PATIENT
  Age: 69 Year
  Sex: Male

DRUGS (4)
  1. CRESTOR [Suspect]
     Indication: HYPO HDL CHOLESTEROLAEMIA
     Route: 048
     Dates: start: 20121001, end: 20121107
  2. METHYCOBAL [Concomitant]
     Dosage: Dose unknown
     Route: 048
  3. ADALAT-CR [Concomitant]
     Route: 048
  4. OLMETEC [Concomitant]
     Route: 048

REACTIONS (3)
  - Gingival bleeding [Recovering/Resolving]
  - Thyroid cancer [Unknown]
  - Platelet count decreased [Unknown]
